FAERS Safety Report 5272342-1 (Version None)
Quarter: 2007Q1

REPORT INFORMATION
  Report Type: 
  Country: None (occurrence: None)
  Receive Date: 20061214
  Receipt Date: 20060912
  Transmission Date: 20070707
  Serious: Yes (Hospitalization)
  Sender: FDA-Public Use
  Company Number: 2006075465

PATIENT
  Age: 66 Year
  Sex: Male
  Weight: 61.2356 kg

DRUGS (2)
  1. BEXTRA [Suspect]
     Indication: ILL-DEFINED DISORDER
     Dates: start: 20041004, end: 20041012
  2. VIOXX [Suspect]
     Indication: ILL-DEFINED DISORDER
     Dates: start: 20040924, end: 20041012

REACTIONS (1)
  - MYOCARDIAL INFARCTION [None]
